FAERS Safety Report 6100175-2 (Version None)
Quarter: 2009Q1

REPORT INFORMATION
  Report Type: 
  Country: None (occurrence: None)
  Receive Date: 20090303
  Receipt Date: 20090302
  Transmission Date: 20090719
  Serious: Yes (Other)
  Sender: FDA-Public Use
  Company Number: NL-JNJFOC-20090206495

PATIENT

DRUGS (2)
  1. CONCERTA [Suspect]
     Route: 065
  2. CONCERTA [Suspect]
     Indication: DRUG USE FOR UNKNOWN INDICATION
     Route: 065

REACTIONS (12)
  - ANXIETY [None]
  - ASTHMA [None]
  - CHANGE IN SUSTAINED ATTENTION [None]
  - DEPRESSION [None]
  - FATIGUE [None]
  - HEADACHE [None]
  - IMPAIRED WORK ABILITY [None]
  - LOSS OF LIBIDO [None]
  - MUSCLE TIGHTNESS [None]
  - MUSCULOSKELETAL CHEST PAIN [None]
  - MYALGIA [None]
  - POOR QUALITY SLEEP [None]
